FAERS Safety Report 12621404 (Version 2)
Quarter: 2016Q3

REPORT INFORMATION
  Report Type: Spontaneous
  Country: US (occurrence: US)
  Receive Date: 20160804
  Receipt Date: 20160825
  Transmission Date: 20161109
  Serious: No
  Sender: FDA-Public Use
  Company Number: US-PFIZER INC-2016372762

PATIENT
  Age: 53 Year
  Sex: Female

DRUGS (6)
  1. GABAPENTIN. [Suspect]
     Active Substance: GABAPENTIN
     Indication: NERVE INJURY
     Dosage: 400 MG, 4X/DAY
     Dates: start: 2016, end: 201608
  2. ZANEX [Concomitant]
     Dosage: 1 MG, 3X/DAY
     Dates: start: 2001
  3. REMERON [Concomitant]
     Active Substance: MIRTAZAPINE
     Dosage: 15 MG, 1X/DAY
     Dates: start: 2009
  4. SYNTHROID [Concomitant]
     Active Substance: LEVOTHYROXINE SODIUM
     Dosage: 150 MG, 1X/DAY
     Dates: start: 1987
  5. PERCOCET [Concomitant]
     Active Substance: ACETAMINOPHEN\OXYCODONE HYDROCHLORIDE
     Dosage: UNK UNK, 4X/DAY [OXYCODONE HYDROCHLORIDE: 7.5]
     Dates: start: 2008
  6. ZANAFLEX [Concomitant]
     Active Substance: TIZANIDINE HYDROCHLORIDE
     Dosage: 4 MG, 2X/DAY
     Dates: start: 2014

REACTIONS (3)
  - Malaise [Unknown]
  - Product use issue [Unknown]
  - Abdominal discomfort [Unknown]

NARRATIVE: CASE EVENT DATE: 20160620
